FAERS Safety Report 23055722 (Version 1)
Quarter: 2023Q4

REPORT INFORMATION
  Report Type: Spontaneous
  Country: US (occurrence: US)
  Receive Date: 20231011
  Receipt Date: 20231011
  Transmission Date: 20240109
  Serious: No
  Sender: FDA-Public Use
  Company Number: US-MYLANLABS-2023M1106943

PATIENT
  Sex: Female
  Weight: 52 kg

DRUGS (1)
  1. AMLODIPINE [Suspect]
     Active Substance: AMLODIPINE BESYLATE
     Indication: Product used for unknown indication
     Dosage: 5 MILLIGRAM, QD (ONCE A DAY) (6 YEARS)
     Route: 065

REACTIONS (4)
  - Urinary tract infection [Unknown]
  - Hypoacusis [Unknown]
  - Nasopharyngitis [Unknown]
  - Pain [Unknown]
